FAERS Safety Report 6815262-0 (Version None)
Quarter: 2010Q3

REPORT INFORMATION
  Report Type: 
  Country: None (occurrence: None)
  Receive Date: 20100701
  Receipt Date: 20100701
  Transmission Date: 20110219
  Serious: Yes (Other)
  Sender: FDA-Public Use
  Company Number: None

PATIENT
  Age: 61 Year
  Sex: Female

DRUGS (1)
  1. CEPHALEXIN [Suspect]
     Indication: CELLULITIS
     Dosage: 1 4 TIMES A DAY PO
     Route: 048
     Dates: start: 20100604, end: 20100610

REACTIONS (4)
  - CHEMICAL INJURY [None]
  - DRY SKIN [None]
  - GAIT DISTURBANCE [None]
  - SKIN EXFOLIATION [None]
